FAERS Safety Report 4618013-3 (Version None)
Quarter: 2005Q1

REPORT INFORMATION
  Report Type: 
  Country: None (occurrence: None)
  Receive Date: 20050322
  Receipt Date: 20050308
  Transmission Date: 20050727
  Serious: Yes (Other)
  Sender: FDA-Public Use
  Company Number: 2005BI000747

PATIENT
  Age: 43 Year
  Sex: Female
  Weight: 83.4619 kg

DRUGS (3)
  1. AVONEX [Suspect]
     Indication: MULTIPLE SCLEROSIS
     Dosage: 30 UG; QW; IM
     Route: 030
     Dates: start: 20040401, end: 20041120
  2. PULMICORT [Concomitant]
  3. MACROBID [Concomitant]

REACTIONS (6)
  - ASTHMA [None]
  - AUTOIMMUNE HEPATITIS [None]
  - JAUNDICE [None]
  - MIGRAINE [None]
  - MULTIPLE SCLEROSIS [None]
  - MUSCLE SPASMS [None]
